FAERS Safety Report 23232370 (Version 3)
Quarter: 2024Q1

REPORT INFORMATION
  Report Type: Spontaneous
  Country: US (occurrence: US)
  Receive Date: 20231127
  Receipt Date: 20240207
  Transmission Date: 20240410
  Serious: No
  Sender: FDA-Public Use
  Company Number: US-SA-SAC20231122001273

PATIENT
  Age: 69 Year
  Sex: Male

DRUGS (3)
  1. DUPIXENT [Suspect]
     Active Substance: DUPILUMAB
     Indication: Dermatitis contact
     Dosage: 300 MG, QOW
     Route: 058
     Dates: start: 2023
  2. DUPIXENT [Suspect]
     Active Substance: DUPILUMAB
     Indication: Rash
  3. DUPIXENT [Suspect]
     Active Substance: DUPILUMAB
     Indication: Dermatitis atopic

REACTIONS (3)
  - Drug ineffective for unapproved indication [Unknown]
  - Inappropriate schedule of product administration [Unknown]
  - Off label use [Unknown]

NARRATIVE: CASE EVENT DATE: 20230101
